FAERS Safety Report 8860298 (Version 2)
Quarter: 2013Q2

REPORT INFORMATION
  Report Type: Spontaneous
  Country: US (occurrence: US)
  Receive Date: 20121025
  Receipt Date: 20130531
  Transmission Date: 20140414
  Serious: Yes (Other)
  Sender: FDA-Public Use
  Company Number: US-PFIZER INC-2012262060

PATIENT
  Age: 56 Year
  Sex: Female

DRUGS (2)
  1. CHANTIX [Suspect]
     Indication: SMOKING CESSATION THERAPY
     Dosage: STARTER PACK
     Dates: start: 20091012, end: 20091110
  2. CHANTIX [Suspect]
     Dosage: CONTINUES PACK
     Dates: start: 20091110, end: 20091228

REACTIONS (3)
  - Suicidal ideation [Unknown]
  - Depression [Unknown]
  - Anxiety [Unknown]
